FAERS Safety Report 4924560-7 (Version None)
Quarter: 2006Q1

REPORT INFORMATION
  Report Type: 
  Country: None (occurrence: None)
  Receive Date: 20060222
  Receipt Date: 20060209
  Transmission Date: 20060701
  Serious: Yes (Hospitalization)
  Sender: FDA-Public Use
  Company Number: 2006003259

PATIENT
  Sex: Male

DRUGS (4)
  1. PYRIDIUM (PHENAZOPYRIDINE HYDROCHLORIDE) [Suspect]
     Indication: CYSTITIS
     Dates: start: 20030101
  2. CAPTOPRIL [Concomitant]
  3. NORFLOXACIN [Concomitant]
  4. ANTIINFLAMMATORY/ANTIRHEUMATIC PRODUCTS (ANTIINFLAMMATORY/ANTIRHEUMATI [Concomitant]

REACTIONS (5)
  - BLADDER DISTENSION [None]
  - CATHETER RELATED COMPLICATION [None]
  - CYSTITIS [None]
  - MYOCARDIAL INFARCTION [None]
  - URINARY TRACT DISORDER [None]
